FAERS Safety Report 6265462-6 (Version None)
Quarter: 2009Q3

REPORT INFORMATION
  Report Type: 
  Country: None (occurrence: None)
  Receive Date: 20090713
  Receipt Date: 20090702
  Transmission Date: 20100115
  Serious: Yes (Disabling, Other)
  Sender: FDA-Public Use
  Company Number: US-TYCO HEALTHCARE/MALLINCKRODT-T200700311

PATIENT

DRUGS (15)
  1. OPTIMARK [Suspect]
     Indication: NUCLEAR MAGNETIC RESONANCE IMAGING
     Dosage: 20 ML, SINGLE
     Route: 042
     Dates: start: 20060118, end: 20060118
  2. OPTIMARK [Suspect]
     Dosage: UNK
     Dates: start: 20060122, end: 20060122
  3. FUROSEMIDE [Concomitant]
  4. TOPROL-XL [Concomitant]
     Indication: CARDIAC DISORDER
     Dosage: 50 MG, QD
     Dates: start: 20060101
  5. DIGOXIN [Concomitant]
     Indication: CARDIAC DISORDER
     Dosage: 1.25 MG, 3 X WEEKLY
     Dates: start: 20060101
  6. PREDNISONE [Concomitant]
     Indication: MYALGIA
     Dosage: 4 MG, QD
  7. VYTORIN [Concomitant]
  8. ASPIRIN [Concomitant]
     Indication: CARDIAC DISORDER
     Dosage: 81 MG, UNK
  9. PRILOSEC [Concomitant]
     Indication: GASTROOESOPHAGEAL REFLUX DISEASE
     Dosage: 20 MG, QD
  10. SONATA [Concomitant]
  11. DOCUSATE [Concomitant]
  12. RESTORIL [Concomitant]
     Indication: SLEEP DISORDER
     Dosage: 15 MG, PRN
  13. SIMVASTATIN [Concomitant]
     Indication: CARDIAC DISORDER
     Dosage: 80 MG, QD
     Dates: start: 20060101
  14. SIMVASTATIN [Concomitant]
     Indication: BLOOD CHOLESTEROL
  15. VITAMIN A [Concomitant]
     Indication: OSTEOPOROSIS
     Dosage: 1.25 MG,ONCE PER WEEK

REACTIONS (3)
  - NEPHROGENIC SYSTEMIC FIBROSIS [None]
  - OFF LABEL USE [None]
  - SCLERODERMA [None]
